FAERS Safety Report 22751636 (Version 3)
Quarter: 2024Q1

REPORT INFORMATION
  Report Type: Spontaneous
  Country: KR (occurrence: KR)
  Receive Date: 20230726
  Receipt Date: 20240319
  Transmission Date: 20240410
  Serious: Yes (Hospitalization, Disabling, Other)
  Sender: FDA-Public Use
  Company Number: KR-009507513-2307KOR010670

PATIENT
  Age: 63 Year
  Sex: Female
  Weight: 76.1 kg

DRUGS (9)
  1. KEYTRUDA [Suspect]
     Active Substance: PEMBROLIZUMAB
     Indication: Endometrial cancer
     Dosage: 200 MILLIGRAM, Q3W
     Route: 042
     Dates: start: 20220411, end: 20220411
  2. DULOXETINE HYDROCHLORIDE [Concomitant]
     Active Substance: DULOXETINE HYDROCHLORIDE
     Indication: Peripheral sensory neuropathy
     Dosage: 30 MILLIGRAM
     Route: 048
     Dates: start: 20210608
  3. PIRENOXINE [Concomitant]
     Active Substance: PIRENOXINE
     Indication: Cataract
     Dosage: 2 GTT DROPS
     Route: 047
  4. PEMIROLAST POTASSIUM [Concomitant]
     Active Substance: PEMIROLAST POTASSIUM
     Indication: Conjunctivitis allergic
     Dosage: 2 GTT DROPS
     Route: 047
  5. ARIPIPRAZOLE [Concomitant]
     Active Substance: ARIPIPRAZOLE
     Indication: Insomnia
     Dosage: 15 MILLIGRAM
     Route: 048
  6. LORAZEPAM [Concomitant]
     Active Substance: LORAZEPAM
     Indication: Insomnia
     Dosage: 1 MILLIGRAM
     Route: 048
  7. QUETIAPINE [Concomitant]
     Active Substance: QUETIAPINE
     Indication: Insomnia
     Dosage: 25 MILLIGRAM
     Route: 048
  8. ACETAMINOPHEN\TRAMADOL HYDROCHLORIDE [Concomitant]
     Active Substance: ACETAMINOPHEN\TRAMADOL HYDROCHLORIDE
     Indication: Peripheral sensory neuropathy
     Dosage: 37.5 MILLIGRAM
     Route: 048
  9. TROPICAMIDE [Concomitant]
     Active Substance: TROPICAMIDE
     Indication: Cataract
     Dosage: 1 DROP
     Route: 047
     Dates: start: 20220504

REACTIONS (2)
  - Cerebral infarction [Recovering/Resolving]
  - Constipation [Recovered/Resolved]

NARRATIVE: CASE EVENT DATE: 20220420
